FAERS Safety Report 25236825 (Version 3)
Quarter: 2025Q2

REPORT INFORMATION
  Report Type: Report from Study
  Country: US (occurrence: US)
  Receive Date: 20250424
  Receipt Date: 20250618
  Transmission Date: 20250717
  Serious: Yes (Other)
  Sender: SUNOVION
  Company Number: US-SMPA-2025SPA004064

PATIENT

DRUGS (2)
  1. ORGOVYX [Suspect]
     Active Substance: RELUGOLIX
     Indication: Prostate cancer
     Route: 048
     Dates: start: 20221003, end: 20221003
  2. ORGOVYX [Suspect]
     Active Substance: RELUGOLIX
     Dosage: 120 MG, QD
     Route: 048
     Dates: start: 20221004

REACTIONS (3)
  - Pneumonia [Unknown]
  - Insomnia [Unknown]
  - Anaemia [Unknown]
